FAERS Safety Report 23079190 (Version 2)
Quarter: 2024Q1

REPORT INFORMATION
  Report Type: Spontaneous
  Country: JP (occurrence: JP)
  Receive Date: 20231018
  Receipt Date: 20240331
  Transmission Date: 20240410
  Serious: Yes (Death)
  Sender: FDA-Public Use
  Company Number: JP-JNJFOC-20221227007

PATIENT
  Age: 8 Decade
  Sex: Female

DRUGS (5)
  1. UPTRAVI [Suspect]
     Active Substance: SELEXIPAG
     Indication: Pulmonary arterial hypertension
     Route: 048
     Dates: start: 20221123
  2. UPTRAVI [Suspect]
     Active Substance: SELEXIPAG
     Route: 048
  3. UPTRAVI [Suspect]
     Active Substance: SELEXIPAG
     Dosage: THERAPY START DATE - 2023
     Route: 048
     Dates: end: 20230315
  4. UPTRAVI [Suspect]
     Active Substance: SELEXIPAG
     Dosage: THERAPY START DATE: //2023
     Route: 048
     Dates: end: 20230930
  5. OPSUMIT [Concomitant]
     Active Substance: MACITENTAN
     Indication: Pulmonary arterial hypertension

REACTIONS (5)
  - Fall [Fatal]
  - Condition aggravated [Fatal]
  - Dizziness [Recovered/Resolved]
  - Faeces discoloured [Recovered/Resolved]
  - Nausea [Recovered/Resolved]

NARRATIVE: CASE EVENT DATE: 20221124
